FAERS Safety Report 6791370-8 (Version None)
Quarter: 2010Q2

REPORT INFORMATION
  Report Type: 
  Country: None (occurrence: None)
  Receive Date: 20100621
  Receipt Date: 20100617
  Transmission Date: 20101027
  Serious: Yes (Life-Threatening)
  Sender: FDA-Public Use
  Company Number: 2010SP033051

PATIENT
  Age: 61 Year
  Sex: Female

DRUGS (12)
  1. CELESTONE [Suspect]
     Indication: DRUG USE FOR UNKNOWN INDICATION
     Dosage: ;ONCE ;IM
     Route: 030
     Dates: start: 20100407, end: 20100407
  2. ROCEPHIN [Concomitant]
     Indication: DRUG USE FOR UNKNOWN INDICATION
     Dosage: ;ONCE ;IM
     Route: 030
     Dates: start: 20100407, end: 20100407
  3. GLUCOPHAGE [Concomitant]
  4. ZESTORETIC [Concomitant]
  5. LASIX [Concomitant]
  6. CORVASAL [Concomitant]
  7. SINGULAIR [Concomitant]
  8. NEXIUM [Concomitant]
  9. ALLOPURINOL [Concomitant]
  10. SYMBICORT [Concomitant]
  11. SEREVENT [Concomitant]
  12. AERIUS [Concomitant]

REACTIONS (4)
  - ANAPHYLACTIC SHOCK [None]
  - BLOOD PRESSURE DECREASED [None]
  - BRONCHOSPASM [None]
  - FORMICATION [None]
